FAERS Safety Report 24069468 (Version 2)
Quarter: 2024Q4

REPORT INFORMATION
  Report Type: Spontaneous
  Country: US (occurrence: US)
  Receive Date: 20240710
  Receipt Date: 20241009
  Transmission Date: 20250114
  Serious: No
  Sender: MANKIND PHARMA
  Company Number: US-MankindUS-000187

PATIENT
  Age: 46 Year
  Sex: Female

DRUGS (1)
  1. NITROFURANTOIN [Suspect]
     Active Substance: NITROFURANTOIN
     Indication: Product used for unknown indication
     Dosage: PRESCRIBED FOR 2X/DAY FOR 7 DAYS
     Dates: start: 20240529

REACTIONS (1)
  - Wrong technique in product usage process [Unknown]
